FAERS Safety Report 12392157 (Version 1)
Quarter: 2016Q2

REPORT INFORMATION
  Report Type: Spontaneous
  Country: US (occurrence: US)
  Receive Date: 20160523
  Receipt Date: 20160523
  Transmission Date: 20160815
  Serious: No
  Sender: FDA-Public Use
  Company Number: US-TEVA-569591USA

PATIENT
  Sex: Female

DRUGS (3)
  1. NORETHINDRONE. [Suspect]
     Active Substance: NORETHINDRONE
     Indication: VAGINAL HAEMORRHAGE
     Dosage: 5 MILLIGRAM DAILY; HALF  OF 5 MG TABLET
     Route: 048
     Dates: start: 20150523, end: 20150531
  2. NORETHINDRONE. [Suspect]
     Active Substance: NORETHINDRONE
     Dosage: 10 MILLIGRAM DAILY;
     Route: 048
     Dates: start: 20150601
  3. NORETHINDRONE. [Suspect]
     Active Substance: NORETHINDRONE
     Dosage: 5 MILLIGRAM DAILY; TAKEN AT NIGHT
     Route: 048
     Dates: start: 201506

REACTIONS (3)
  - Vaginal haemorrhage [Recovered/Resolved]
  - Headache [Not Recovered/Not Resolved]
  - Nausea [Recovering/Resolving]
